FAERS Safety Report 7019558-1 (Version None)
Quarter: 2010Q3

REPORT INFORMATION
  Report Type: 
  Country: None (occurrence: None)
  Receive Date: 20100928
  Receipt Date: 20100928
  Transmission Date: 20110219
  Serious: No
  Sender: FDA-Public Use
  Company Number: None

PATIENT
  Age: 4 Year
  Sex: Female
  Weight: 22.6799 kg

DRUGS (2)
  1. AMOX-CLAV ES 600 MG/42.9 MG PER 5 ML NOVOPHARM LIMITED [Suspect]
     Indication: LABYRINTHITIS
     Dosage: 1.5 TSP 2X DAILY PO
     Route: 048
     Dates: start: 20100921, end: 20100924
  2. AMOX-CLAV ES 600 MG/42.9 MG PER 5 ML NOVOPHARM LIMITED [Suspect]
     Indication: SINUSITIS
     Dosage: 1.5 TSP 2X DAILY PO
     Route: 048
     Dates: start: 20100921, end: 20100924

REACTIONS (5)
  - ABDOMINAL PAIN UPPER [None]
  - DIARRHOEA [None]
  - DRUG DISPENSING ERROR [None]
  - EXPIRED DRUG ADMINISTERED [None]
  - PRODUCT TASTE ABNORMAL [None]
